FAERS Safety Report 5656159-1 (Version None)
Quarter: 2008Q1

REPORT INFORMATION
  Report Type: 
  Country: None (occurrence: None)
  Receive Date: 20080305
  Receipt Date: 20080212
  Transmission Date: 20080703
  Serious: Yes (Hospitalization)
  Sender: FDA-Public Use
  Company Number: US021963

PATIENT
  Age: 50 Year
  Sex: Female

DRUGS (8)
  1. ACTIQ [Suspect]
     Indication: BACK PAIN
     Dosage: 1200 UG TID BUCCAL
     Route: 002
     Dates: start: 20021218
  2. ACTIQ [Suspect]
     Indication: BACK PAIN
     Dosage: DOSE TAPERED DOWN BUCCAL
     Route: 002
     Dates: end: 20041108
  3. OXYCONTIN [Suspect]
     Indication: PAIN
     Dosage: 300 MG QD ORAL
     Route: 048
  4. OXYCONTIN [Suspect]
     Indication: PAIN
     Dosage: 20 MG TID ORAL
     Route: 048
     Dates: end: 20041216
  5. INDERAL /00030001/ [Concomitant]
  6. KEFLEX /00145501/ [Concomitant]
  7. DILAUDID [Concomitant]
  8. MORPHINE [Concomitant]

REACTIONS (21)
  - ABDOMINAL PAIN [None]
  - AGITATION [None]
  - DEHYDRATION [None]
  - DELIRIUM [None]
  - DENTAL CARIES [None]
  - DEPENDENCE [None]
  - DRUG INEFFECTIVE [None]
  - DRUG WITHDRAWAL SYNDROME [None]
  - HAEMODYNAMIC INSTABILITY [None]
  - HEADACHE [None]
  - HYPOKALAEMIA [None]
  - MENTAL STATUS CHANGES [None]
  - MYOCLONIC EPILEPSY [None]
  - NAUSEA [None]
  - NEUROGENIC BLADDER [None]
  - OVERDOSE [None]
  - TACHYARRHYTHMIA [None]
  - TOOTH FRACTURE [None]
  - TOOTH LOSS [None]
  - URINARY TRACT INFECTION [None]
  - VOMITING [None]
